FAERS Safety Report 7786848-4 (Version None)
Quarter: 2011Q3

REPORT INFORMATION
  Report Type: 
  Country: None (occurrence: None)
  Receive Date: 20110929
  Receipt Date: 20110923
  Transmission Date: 20111222
  Serious: Yes (Death, Life-Threatening, Hospitalization)
  Sender: FDA-Public Use
  Company Number: FR-MERCK-1109FRA00097

PATIENT
  Age: 57 Year
  Sex: Male
  Weight: 54 kg

DRUGS (5)
  1. ESOMEPRAZOLE MAGNESIUM [Suspect]
     Indication: GASTRODUODENAL ULCER
     Route: 048
     Dates: start: 20100127
  2. ATAZANAVIR SULFATE [Concomitant]
     Indication: HIV INFECTION
     Route: 048
     Dates: end: 20100209
  3. RITONAVIR [Suspect]
     Indication: HIV INFECTION
     Route: 048
     Dates: end: 20100222
  4. ISENTRESS [Suspect]
     Indication: HIV INFECTION
     Route: 048
     Dates: end: 20100222
  5. DARUNAVIR [Suspect]
     Indication: HIV INFECTION
     Route: 048
     Dates: start: 20100209, end: 20100222

REACTIONS (3)
  - JAUNDICE [None]
  - HEPATIC FAILURE [None]
  - HEPATITIS CHOLESTATIC [None]
